FAERS Safety Report 6543863-6 (Version None)
Quarter: 2010Q1

REPORT INFORMATION
  Report Type: 
  Country: None (occurrence: None)
  Receive Date: 20100119
  Receipt Date: 20100119
  Transmission Date: 20100710
  Serious: Yes (Hospitalization)
  Sender: FDA-Public Use
  Company Number: None

PATIENT
  Age: 41 Year
  Sex: Male
  Weight: 92 kg

DRUGS (1)
  1. IBUPROFEN [Suspect]
     Indication: PAIN
     Dosage: PRN

REACTIONS (4)
  - ANAEMIA [None]
  - DUODENAL ULCER [None]
  - GASTRIC HAEMORRHAGE [None]
  - SMALL INTESTINAL HAEMORRHAGE [None]
